FAERS Safety Report 26082366 (Version 1)
Quarter: 2025Q4

REPORT INFORMATION
  Report Type: Spontaneous
  Country: US (occurrence: None)
  Receive Date: 20251123
  Receipt Date: 20251123
  Transmission Date: 20260118
  Serious: Yes (unspecified)
  Sender: FDA-CTU
  Company Number: None

PATIENT
  Age: 50 Year
  Sex: Female
  Weight: 63 kg

DRUGS (7)
  1. COSENTYX [Suspect]
     Active Substance: SECUKINUMAB
     Indication: Arthritis reactive
     Dates: start: 20241101, end: 20250630
  2. COSENTYX [Suspect]
     Active Substance: SECUKINUMAB
     Indication: Psoriatic arthropathy
  3. CYCLOSPORINE [Concomitant]
     Active Substance: CYCLOSPORINE
  4. TREMFYA [Concomitant]
     Active Substance: GUSELKUMAB
  5. LEVOTHYROXINE [Concomitant]
     Active Substance: LEVOTHYROXINE
  6. estodial [Concomitant]
  7. PROGESTERONE [Concomitant]
     Active Substance: PROGESTERONE

REACTIONS (5)
  - Ear infection [None]
  - Psoriasis [None]
  - Alopecia [None]
  - Rash [None]
  - Rash [None]

NARRATIVE: CASE EVENT DATE: 20250201
